FAERS Safety Report 8830472 (Version 1)
Quarter: 2012Q4

REPORT INFORMATION
  Report Type: 
  Country: FR (occurrence: FR)
  Receive Date: 20121009
  Receipt Date: 20121009
  Transmission Date: 20130627
  Serious: Yes (Life-Threatening, Hospitalization)
  Sender: FDA-Public Use
  Company Number: FR-COVIDIEN/TYCO HEALTHCARE/MALLINCKRODT-T201203596

PATIENT
  Age: 68 Year
  Sex: Male

DRUGS (1)
  1. OPTIRAY 350 [Suspect]
     Indication: ANGIOPLASTY
     Dosage: UNKNOWN, single
     Route: 022
     Dates: start: 20120710, end: 20120710

REACTIONS (1)
  - Anaphylactic shock [Recovered/Resolved]
